FAERS Safety Report 14093193 (Version 1)
Quarter: 2017Q4

REPORT INFORMATION
  Report Type: Spontaneous
  Country: US (occurrence: US)
  Receive Date: 20171016
  Receipt Date: 20171016
  Transmission Date: 20180321
  Serious: No
  Sender: FDA-Public Use
  Company Number: US-PFIZER INC-2017441830

PATIENT
  Sex: Male

DRUGS (1)
  1. ZITHROMAX [Suspect]
     Active Substance: AZITHROMYCIN DIHYDRATE

REACTIONS (5)
  - Dyspepsia [Unknown]
  - Hepatic cyst [Unknown]
  - Hepatic steatosis [Unknown]
  - Abdominal pain upper [Unknown]
  - Anxiety [Unknown]
